FAERS Safety Report 8301524-7 (Version None)
Quarter: 2012Q2

REPORT INFORMATION
  Report Type: 
  Country: None (occurrence: None)
  Receive Date: 20120420
  Receipt Date: 20120416
  Transmission Date: 20120825
  Serious: Yes (Other)
  Sender: FDA-Public Use
  Company Number: PHHY2012JP032144

PATIENT
  Age: 53 Year
  Sex: Female

DRUGS (7)
  1. LENALIDOMIDE [Interacting]
     Dosage: 15 MG
     Dates: start: 20101101
  2. LENALIDOMIDE [Interacting]
     Dosage: 5 MG
  3. DEXAMETHASONE [Concomitant]
  4. ITRACONAZOLE [Suspect]
     Indication: INFECTION PROPHYLAXIS
     Dosage: 100 MG, DAILY
     Dates: start: 20101101
  5. LENALIDOMIDE [Interacting]
     Dosage: 25 MG
     Dates: start: 20101001
  6. LENALIDOMIDE [Interacting]
     Dosage: 10 MG
  7. SULFAMETHOXAZOLE + TRIMETHOPRIM [Concomitant]
     Indication: INFECTION PROPHYLAXIS
     Dosage: 400 MG, DAILY
     Dates: start: 20101101

REACTIONS (4)
  - NEUTROPENIA [None]
  - INFECTION [None]
  - DRUG INTERACTION [None]
  - DRUG LEVEL INCREASED [None]
